FAERS Safety Report 6296578-6 (Version None)
Quarter: 2009Q3

REPORT INFORMATION
  Report Type: 
  Country: None (occurrence: None)
  Receive Date: 20090804
  Receipt Date: 20090730
  Transmission Date: 20100115
  Serious: Yes (Other)
  Sender: FDA-Public Use
  Company Number: CH-ABBOTT-09P-151-0588216-00

PATIENT
  Age: 31 Year
  Sex: Female

DRUGS (4)
  1. KALETRA [Suspect]
     Indication: ASYMPTOMATIC HIV INFECTION
     Dates: start: 20070101
  2. COMBIVIR [Suspect]
     Indication: ASYMPTOMATIC HIV INFECTION
  3. DOXYCLINE [Suspect]
     Indication: MALARIA PROPHYLAXIS
     Dosage: 100 MG DAILY
     Dates: start: 20080818, end: 20080916
  4. FOLIC ACID [Concomitant]
     Indication: DRUG USE FOR UNKNOWN INDICATION

REACTIONS (1)
  - ABORTION SPONTANEOUS [None]
